FAERS Safety Report 12380545 (Version 2)
Quarter: 2018Q1

REPORT INFORMATION
  Report Type: Report from Study
  Country: US (occurrence: US)
  Receive Date: 20160518
  Receipt Date: 20180112
  Transmission Date: 20180508
  Serious: Yes (Hospitalization)
  Sender: FDA-Public Use
  Company Number: PHHO2007US023271

PATIENT
  Age: 53 Year
  Sex: Female
  Weight: 73.8 kg

DRUGS (9)
  1. TYVERB [Suspect]
     Active Substance: LAPATINIB
     Indication: BREAST CANCER METASTATIC
     Dosage: 1000 MG, QD
     Route: 048
     Dates: start: 20070808, end: 20071226
  2. TRASTUZUMAB. [Suspect]
     Active Substance: TRASTUZUMAB
     Indication: BREAST CANCER METASTATIC
     Dosage: 4 MG/KG, QW
     Route: 042
     Dates: start: 20070808, end: 20071226
  3. PACLITAXEL. [Suspect]
     Active Substance: PACLITAXEL
     Indication: BREAST CANCER METASTATIC
     Dosage: 80 MG/M2, CYCLIC
     Route: 042
     Dates: start: 20070808
  4. MICARDIS [Concomitant]
     Active Substance: TELMISARTAN
     Indication: HYPERTENSION
     Dosage: 40 MG, QD
     Route: 048
  5. RESTORIL [Concomitant]
     Active Substance: TEMAZEPAM
     Indication: INSOMNIA
     Dosage: 30 MG, PRN
     Route: 048
     Dates: start: 20071025
  6. HYDROCHLOROTHIAZIDE. [Concomitant]
     Active Substance: HYDROCHLOROTHIAZIDE
     Indication: HYPERTENSION
     Dosage: 80 MG, QD
     Route: 048
  7. LOPERAMIDE [Concomitant]
     Active Substance: LOPERAMIDE
     Indication: DIARRHOEA
     Dosage: 4 MG, QD
     Route: 048
     Dates: start: 20070808
  8. ZOMETA [Concomitant]
     Active Substance: ZOLEDRONIC ACID
     Indication: BREAST CANCER METASTATIC
     Dosage: 4 MG, QMO
     Route: 042
     Dates: start: 20070806
  9. PERCOCET [Concomitant]
     Active Substance: ACETAMINOPHEN\OXYCODONE HYDROCHLORIDE
     Indication: PAIN
     Dosage: 330 MG, PRN
     Route: 048
     Dates: start: 20070905

REACTIONS (8)
  - Bone pain [Unknown]
  - Lethargy [Unknown]
  - Decreased appetite [Unknown]
  - Neuropathy peripheral [Unknown]
  - Guillain-Barre syndrome [Not Recovered/Not Resolved]
  - Fatigue [Unknown]
  - Dehydration [Recovered/Resolved]
  - Hypotension [Unknown]

NARRATIVE: CASE EVENT DATE: 20071226
